FAERS Safety Report 6013318-6 (Version None)
Quarter: 2008Q4

REPORT INFORMATION
  Report Type: 
  Country: None (occurrence: None)
  Receive Date: 20081218
  Receipt Date: 20081218
  Transmission Date: 20090506
  Serious: Yes (Other)
  Sender: FDA-Public Use
  Company Number: None

PATIENT
  Age: 60 Year
  Sex: Female

DRUGS (1)
  1. ESTRING [Suspect]
     Indication: MENOPAUSAL SYMPTOMS

REACTIONS (3)
  - DEVICE LEAKAGE [None]
  - DEVICE RELATED INFECTION [None]
  - PRODUCT QUALITY ISSUE [None]
